FAERS Safety Report 5022690-5 (Version None)
Quarter: 2006Q2

REPORT INFORMATION
  Report Type: 
  Country: None (occurrence: None)
  Receive Date: 20060501
  Receipt Date: 20060203
  Transmission Date: 20061013
  Serious: Yes (Hospitalization)
  Sender: FDA-Public Use
  Company Number: 200610669BWH

PATIENT
  Age: 49 Year
  Sex: Male
  Weight: 82.1011 kg

DRUGS (8)
  1. NEXAVAR [Suspect]
     Indication: RENAL CELL CARCINOMA STAGE UNSPECIFIED
     Dosage: 400 MG, BID, ORAL
     Route: 048
     Dates: start: 20060117, end: 20060201
  2. NYSTATIN SWISH AND SWALLOW [Concomitant]
  3. ROXANOL [Concomitant]
  4. CIPRO [Concomitant]
  5. CORTISPORIN [Concomitant]
  6. COUMADIN [Concomitant]
  7. THALOMID [Concomitant]
  8. AMIKIN [Concomitant]

REACTIONS (1)
  - RASH GENERALISED [None]
